FAERS Safety Report 4606953-0 (Version None)
Quarter: 2005Q1

REPORT INFORMATION
  Report Type: 
  Country: None (occurrence: None)
  Receive Date: 20050310
  Receipt Date: 20050304
  Transmission Date: 20050727
  Serious: Yes (Death, Hospitalization)
  Sender: FDA-Public Use
  Company Number: 2005UW02500

PATIENT
  Age: 24 Year
  Sex: Female

DRUGS (4)
  1. DIPRIVAN [Suspect]
     Dosage: 10 MG/ML IV
     Route: 042
  2. PHENYTOIN [Concomitant]
  3. PHENOBARBITAL [Concomitant]
  4. LORAZEPAM [Concomitant]

REACTIONS (10)
  - ALANINE AMINOTRANSFERASE INCREASED [None]
  - BLOOD CREATINE PHOSPHOKINASE INCREASED [None]
  - BRADYCARDIA [None]
  - CARDIAC FAILURE [None]
  - DEHYDRATION [None]
  - HYPOTENSION [None]
  - METABOLIC ACIDOSIS [None]
  - MULTI-ORGAN FAILURE [None]
  - PROPOFOL INFUSION SYNDROME [None]
  - RENAL FAILURE [None]
